FAERS Safety Report 7308335-X (Version None)
Quarter: 2011Q1

REPORT INFORMATION
  Report Type: 
  Country: None (occurrence: None)
  Receive Date: 20110223
  Receipt Date: 20110217
  Transmission Date: 20110831
  Serious: Yes (Hospitalization)
  Sender: FDA-Public Use
  Company Number: B0695292A

PATIENT
  Sex: Female

DRUGS (8)
  1. NON STEROID ANTI INFLAMMATORY DRUG [Concomitant]
     Route: 065
  2. ARIXTRA [Suspect]
     Indication: THROMBOSIS PROPHYLAXIS
     Dosage: 1.5MG PER DAY
     Route: 058
     Dates: start: 20110115, end: 20110116
  3. MAGMITT [Concomitant]
     Dosage: 990MG PER DAY
     Route: 048
     Dates: start: 20110116
  4. LOXONIN [Concomitant]
     Indication: PAIN
     Dosage: 180MG PER DAY
     Route: 048
     Dates: start: 20110115
  5. FOSMICIN S [Concomitant]
     Indication: INFECTION PROPHYLAXIS
     Dosage: 4G PER DAY
     Route: 042
     Dates: start: 20110114, end: 20110116
  6. CHINESE MEDICATION [Concomitant]
     Dosage: 6IUAX PER DAY
     Route: 048
     Dates: start: 20110116
  7. VOLTAREN [Concomitant]
     Indication: PAIN
     Dosage: 50MG PER DAY
     Route: 054
     Dates: start: 20110115, end: 20110115
  8. PANTOSIN [Concomitant]
     Dosage: 200MG PER DAY
     Route: 042
     Dates: start: 20110115, end: 20110115

REACTIONS (4)
  - PURPURA [None]
  - SUBCUTANEOUS HAEMATOMA [None]
  - INTRA-ABDOMINAL HAEMORRHAGE [None]
  - PYREXIA [None]
